FAERS Safety Report 24970651 (Version 2)
Quarter: 2025Q1

REPORT INFORMATION
  Report Type: Spontaneous
  Country: GB (occurrence: GB)
  Receive Date: 20250214
  Receipt Date: 20250306
  Transmission Date: 20250408
  Serious: Yes (Hospitalization)
  Sender: MYLAN
  Company Number: GB-MYLANLABS-2025M1012313

PATIENT
  Sex: Female

DRUGS (1)
  1. CLOZARIL [Suspect]
     Active Substance: CLOZAPINE
     Indication: Schizophrenia

REACTIONS (7)
  - Colitis [Unknown]
  - C-reactive protein increased [Unknown]
  - Chest pain [Unknown]
  - Abdominal pain [Unknown]
  - Body temperature abnormal [Unknown]
  - Cholecystectomy [Unknown]
  - Product dose omission issue [Unknown]
